FAERS Safety Report 7458747-9 (Version None)
Quarter: 2011Q2

REPORT INFORMATION
  Report Type: 
  Country: None (occurrence: None)
  Receive Date: 20110504
  Receipt Date: 20110503
  Transmission Date: 20111010
  Serious: Yes (Life-Threatening, Hospitalization)
  Sender: FDA-Public Use
  Company Number: PHHY2011GB36963

PATIENT
  Sex: Male

DRUGS (6)
  1. MYCOPHENOLATE MOFETIL [Concomitant]
     Dosage: UNK UKN, UNK
  2. TACROLIMUS [Suspect]
     Dosage: UNK UKN, UNK
     Route: 048
     Dates: start: 20110319
  3. PARACETAMOL [Concomitant]
     Dosage: UNK UKN, UNK
  4. ACICLOVIR [Concomitant]
     Dosage: UNK UKN, UNK
  5. PREDNISOLONE [Concomitant]
     Dosage: UNK UKN, UNK
  6. RANITIDINE [Concomitant]

REACTIONS (1)
  - CARDIOMYOPATHY [None]
